FAERS Safety Report 22790070 (Version 4)
Quarter: 2023Q4

REPORT INFORMATION
  Report Type: Report from Study
  Country: US (occurrence: US)
  Receive Date: 20230804
  Receipt Date: 20231026
  Transmission Date: 20240110
  Serious: Yes (Death)
  Sender: FDA-Public Use
  Company Number: US-SEATTLE GENETICS-2023SGN08777

PATIENT
  Age: 75 Year
  Sex: Female
  Weight: 54.6 kg

DRUGS (19)
  1. BRENTUXIMAB VEDOTIN [Suspect]
     Active Substance: BRENTUXIMAB VEDOTIN
     Indication: Non-small cell lung cancer metastatic
     Dosage: 1.8 MG/KG, DAY 1 OF EVERY 21-DAY CYCLE
     Route: 042
     Dates: start: 20230706
  2. PEMBROLIZUMAB [Suspect]
     Active Substance: PEMBROLIZUMAB
     Indication: Non-small cell lung cancer metastatic
     Dosage: 200 MG, DAY 1 OF EVERY 21-DAY CYCLE
     Route: 042
     Dates: start: 20230706
  3. ROBITUSSIN (GUAIFENESIN) [Concomitant]
     Active Substance: GUAIFENESIN
     Indication: Antitussive therapy
     Dosage: 100-10MG/5ML, Q6 HOURS PRN
     Route: 048
     Dates: start: 20230620, end: 20230802
  4. ALBUTEROL SULFATE [Concomitant]
     Active Substance: ALBUTEROL SULFATE
     Dosage: 1-2 PUFFS EVERY 6 HOURS AS NEEDED
     Dates: start: 20230420
  5. ROBITUSSIN AC [CODEINE PHOSPHATE;GUAIFENESIN] [Concomitant]
     Indication: Cough
     Dosage: 10 ML, Q6HR AS NEEDED
     Route: 048
     Dates: start: 20230620
  6. DUONEB [Concomitant]
     Active Substance: ALBUTEROL SULFATE\IPRATROPIUM BROMIDE
     Indication: Cough
     Dosage: 1 VIAL, Q4HR AS NEEDED
     Dates: start: 20230424
  7. DUONEB [Concomitant]
     Active Substance: ALBUTEROL SULFATE\IPRATROPIUM BROMIDE
     Indication: Wheezing
  8. DUONEB [Concomitant]
     Active Substance: ALBUTEROL SULFATE\IPRATROPIUM BROMIDE
     Indication: Dyspnoea
  9. ATIVAN [Concomitant]
     Active Substance: LORAZEPAM
     Indication: Premedication
     Dosage: 1 MG, SINGLE
     Route: 048
     Dates: start: 20230621
  10. PROCHLORPERAZINE EDISYLATE [Concomitant]
     Active Substance: PROCHLORPERAZINE EDISYLATE
     Indication: Nausea
     Dosage: 10 MG, Q6HR AS NEEDED
     Route: 048
     Dates: start: 20230706
  11. PROCHLORPERAZINE EDISYLATE [Concomitant]
     Active Substance: PROCHLORPERAZINE EDISYLATE
     Indication: Vomiting
  12. VITAMIN D3 [Concomitant]
     Active Substance: CHOLECALCIFEROL
     Indication: Vitamin supplementation
     Dosage: 5000-X21 IUS, 125 MCG, QD
     Route: 048
     Dates: end: 20230802
  13. MENAQUINONE 6 [Concomitant]
     Active Substance: MENAQUINONE 6
     Indication: Supplementation therapy
     Dosage: 100 MCG, QD
     Route: 048
     Dates: end: 20230802
  14. YUPELRI [Concomitant]
     Active Substance: REVEFENACIN
     Indication: Wheezing
     Dosage: 175 MCG/3MG, QD
     Dates: start: 202304, end: 20230802
  15. PERFOROMIST [Concomitant]
     Active Substance: FORMOTEROL FUMARATE DIHYDRATE
     Indication: Wheezing
     Dosage: 20 MCG/2MG, BID
     Dates: start: 202304, end: 20230802
  16. PROCHLORPERAZINE [Concomitant]
     Active Substance: PROCHLORPERAZINE
     Indication: Vomiting
     Dosage: 10 MG, Q6HR PRN
     Route: 048
     Dates: start: 20230725, end: 20230802
  17. PROCHLORPERAZINE [Concomitant]
     Active Substance: PROCHLORPERAZINE
     Indication: Nausea
  18. ZOFRAN [Concomitant]
     Active Substance: ONDANSETRON HYDROCHLORIDE
     Indication: Vomiting
     Dosage: 8 MG, Q8HR PRN
     Route: 048
     Dates: start: 20230725, end: 20230802
  19. ZOFRAN [Concomitant]
     Active Substance: ONDANSETRON HYDROCHLORIDE
     Indication: Nausea
     Dosage: 8 MG, Q8HR PRN
     Route: 048
     Dates: start: 20230706

REACTIONS (3)
  - Haemolytic anaemia [Fatal]
  - Portal vein thrombosis [Fatal]
  - Multiple organ dysfunction syndrome [Fatal]

NARRATIVE: CASE EVENT DATE: 20230801
